FAERS Safety Report 4952021-8 (Version None)
Quarter: 2006Q1

REPORT INFORMATION
  Report Type: 
  Country: None (occurrence: None)
  Receive Date: 20060320
  Receipt Date: 20060306
  Transmission Date: 20060701
  Serious: Yes (Hospitalization)
  Sender: FDA-Public Use
  Company Number: 2006034265

PATIENT
  Age: 8 Year
  Sex: Male

DRUGS (1)
  1. ZYRTEC [Suspect]
     Indication: ILL-DEFINED DISORDER
     Dosage: 30 ML (ONCE)

REACTIONS (1)
  - ACCIDENTAL OVERDOSE [None]
